FAERS Safety Report 9168214 (Version 2)
Quarter: 2013Q1

REPORT INFORMATION
  Report Type: Spontaneous
  Country: FR (occurrence: None)
  Receive Date: 20130227
  Receipt Date: 20130304
  Transmission Date: 20140127
  Serious: Yes (Other)
  Sender: FDA-Public Use
  Company Number: 2013034738

PATIENT
  Age: 57 Year
  Sex: Male

DRUGS (1)
  1. PRIVIGEN (IMMUNE GLOBULIN INTRAVENOUS (HUMAN) 10% LIQUID) [Suspect]
     Indication: PROPHYLAXIS
     Dosage: 80 G QD, 20 G OVER 4 HOURS FOR 2 DAYS (DAY 23)
     Route: 042

REACTIONS (8)
  - Transfusion-related acute lung injury [None]
  - Antibody test positive [None]
  - Cough [None]
  - Chest discomfort [None]
  - Headache [None]
  - Chills [None]
  - Dyspnoea [None]
  - Oxygen saturation decreased [None]
